FAERS Safety Report 25605996 (Version 3)
Quarter: 2025Q3

REPORT INFORMATION
  Report Type: Report from Study
  Country: CA (occurrence: CA)
  Receive Date: 20250725
  Receipt Date: 20250919
  Transmission Date: 20251020
  Serious: Yes (Other)
  Sender: BIOCON
  Company Number: CA-MYLANLABS-2023M1001750

PATIENT

DRUGS (2)
  1. HULIO [Suspect]
     Active Substance: ADALIMUMAB-FKJP
     Indication: Juvenile idiopathic arthritis
     Dosage: 40 MILLIGRAM, Q2W
     Route: 058
     Dates: start: 20220718
  2. HULIO [Suspect]
     Active Substance: ADALIMUMAB-FKJP
     Route: 058
     Dates: start: 20220718

REACTIONS (13)
  - Chronic kidney disease [Unknown]
  - Juvenile idiopathic arthritis [Unknown]
  - Nasal congestion [Unknown]
  - Agitation [Unknown]
  - Malaise [Unknown]
  - Illness [Recovering/Resolving]
  - Effusion [Unknown]
  - Gait disturbance [Unknown]
  - Synovitis [Unknown]
  - Cough [Unknown]
  - Ear infection [Unknown]
  - Nasopharyngitis [Unknown]
  - Inappropriate schedule of product administration [Unknown]
